FAERS Safety Report 25795556 (Version 1)
Quarter: 2025Q3

REPORT INFORMATION
  Report Type: Spontaneous
  Country: US (occurrence: None)
  Receive Date: 20250911
  Receipt Date: 20250911
  Transmission Date: 20251020
  Serious: Yes (Death)
  Sender: FDA-CTU
  Company Number: None

PATIENT
  Age: 37 Year
  Sex: Female
  Weight: 40.55 kg

DRUGS (1)
  1. COLLAGENASE SANTYL [Suspect]
     Active Substance: COLLAGENASE CLOSTRIDIUM HISTOLYTICUM
     Indication: Wound
     Dosage: FREQUENCY : DAILY;?
     Route: 061
     Dates: start: 20241210, end: 20250830

REACTIONS (1)
  - Colon cancer [None]

NARRATIVE: CASE EVENT DATE: 20250830
